FAERS Safety Report 10449044 (Version 3)
Quarter: 2014Q3

REPORT INFORMATION
  Report Type: Report from Study
  Country: FI (occurrence: FI)
  Receive Date: 20140912
  Receipt Date: 20140914
  Transmission Date: 20150326
  Serious: Yes (Hospitalization)
  Sender: FDA-Public Use
  Company Number: FI-ROCHE-1459838

PATIENT
  Age: 58 Year
  Sex: Female
  Weight: 83.1 kg

DRUGS (9)
  1. OBINUTUZUMAB [Suspect]
     Active Substance: OBINUTUZUMAB
     Dosage: DATE OF LAST  DOSE PRIOR TO SAE 05/SEP/2014?C1D2
     Route: 042
     Dates: start: 20140905
  2. PROGYNOVA [Concomitant]
     Active Substance: ESTRADIOL VALERATE
     Route: 048
     Dates: start: 2006
  3. THYROXIN [Concomitant]
     Active Substance: LEVOTHYROXINE
     Route: 048
     Dates: start: 1993
  4. ONDANSETRON [Concomitant]
     Active Substance: ONDANSETRON
     Route: 048
     Dates: start: 20140904, end: 20140906
  5. ONDANSETRON [Concomitant]
     Active Substance: ONDANSETRON
     Route: 042
     Dates: start: 20140904, end: 20140904
  6. OBINUTUZUMAB [Suspect]
     Active Substance: OBINUTUZUMAB
     Indication: CHRONIC LYMPHOCYTIC LEUKAEMIA
     Dosage: MOST RECENT DOSE ON 05/SEP/2014 PRIOR TO SAE
     Route: 042
     Dates: start: 20140904
  7. CYCLOPHOSPHAMIDE. [Suspect]
     Active Substance: CYCLOPHOSPHAMIDE
     Indication: CHRONIC LYMPHOCYTIC LEUKAEMIA
     Dosage: C1D1 AT 250 MG/M2 (PLANNED DOSE: 250 MG/M2) AT 20:00 HRS?MOST RECENT DOSE ON 06/SEP/2014 PRIOR TO SA
     Route: 048
     Dates: start: 20140904
  8. FLUDARABINE [Suspect]
     Active Substance: FLUDARABINE PHOSPHATE
     Indication: CHRONIC LYMPHOCYTIC LEUKAEMIA
     Dosage: C1D1 AT 40 MG/M2 (PLANNED DOSE: 40 MG/M2) AT 20:00 HRS?MOST RECENT DOSE ON 06/SEP/2014 PRIOR TO SAE
     Route: 048
     Dates: start: 20140904
  9. BETASERC [Concomitant]
     Active Substance: BETAHISTINE
     Route: 048
     Dates: start: 201110

REACTIONS (1)
  - Febrile neutropenia [Recovered/Resolved]

NARRATIVE: CASE EVENT DATE: 20140906
